FAERS Safety Report 8850963 (Version 1)
Quarter: 2012Q4

REPORT INFORMATION
  Report Type: 
  Country: US (occurrence: US)
  Receive Date: 20121019
  Receipt Date: 20121019
  Transmission Date: 20130627
  Serious: Yes (Other)
  Sender: FDA-Public Use
  Company Number: US-SANOFI-AVENTIS-2012SA075455

PATIENT
  Age: 74 Year
  Sex: Male

DRUGS (3)
  1. CLOPIDOGREL BISULFATE [Suspect]
     Route: 065
     Dates: start: 2002, end: 2010
  2. CLOPIDOGREL BISULFATE [Suspect]
     Route: 065
     Dates: start: 2010
  3. ASPIRIN [Suspect]
     Route: 065

REACTIONS (6)
  - Coronary artery restenosis [Unknown]
  - Percutaneous coronary intervention [Unknown]
  - Drug resistance [Recovering/Resolving]
  - Prescribed overdose [Unknown]
  - Therapeutic response decreased [Unknown]
  - Coronary arterial stent insertion [Unknown]
